FAERS Safety Report 9693972 (Version 4)
Quarter: 2014Q1

REPORT INFORMATION
  Report Type: Spontaneous
  Country: DE (occurrence: DE)
  Receive Date: 20131118
  Receipt Date: 20140116
  Transmission Date: 20141002
  Serious: Yes (Hospitalization)
  Sender: FDA-Public Use
  Company Number: DE-ELI_LILLY_AND_COMPANY-DE201309001236

PATIENT
  Age: 67 Year
  Sex: Male

DRUGS (9)
  1. EFIENT [Suspect]
     Indication: ACUTE MYOCARDIAL INFARCTION
     Dosage: 10 MG, SINGLE
     Route: 048
     Dates: start: 20130603
  2. EFIENT [Suspect]
     Dosage: 60 MG, SINGLE
     Dates: start: 20130603
  3. ATORVASTATIN [Concomitant]
     Dosage: 40 MG, UNK
  4. RAMIPRIL [Concomitant]
     Dosage: 2.5 MG, UNK
  5. MAGIUM K FORTE [Concomitant]
  6. METOHEXAL SUCC [Concomitant]
     Dosage: 23.75 MG, UNK
  7. GODAMED [Concomitant]
     Dosage: 100 MG, UNK
  8. ALLOPURINOL [Concomitant]
     Dosage: 100 MG, UNK
  9. PANTOPRAZOLE [Concomitant]

REACTIONS (3)
  - Helicobacter gastritis [Recovered/Resolved]
  - Gastric haemorrhage [Unknown]
  - Diverticulum [Unknown]
